FAERS Safety Report 9396277 (Version 2)
Quarter: 2013Q3

REPORT INFORMATION
  Report Type: Spontaneous
  Country: FR (occurrence: None)
  Receive Date: 20130702
  Receipt Date: 20130815
  Transmission Date: 20140515
  Serious: Yes (Hospitalization)
  Sender: FDA-Public Use
  Company Number: 2013036727

PATIENT
  Age: 8 Year
  Sex: Male

DRUGS (1)
  1. PRIVIGEN (IMMUNE GLOBULIN INTRAVENOUS (HUMAN) 10% LIQUID) [Suspect]
     Indication: IMMUNE THROMBOCYTOPENIC PURPURA
     Dosage: 25 G SINGLE, 20 G LOT, 5 G LOT?INTRAVENOUS (NOT OTHERWISE SPECIFIED)
     Route: 042
     Dates: start: 20130605

REACTIONS (3)
  - Meningeal disorder [None]
  - Musculoskeletal stiffness [None]
  - Headache [None]
